FAERS Safety Report 14190056 (Version 1)
Quarter: 2017Q4

REPORT INFORMATION
  Report Type: Spontaneous
  Country: US (occurrence: US)
  Receive Date: 20171114
  Receipt Date: 20171114
  Transmission Date: 20180321
  Serious: No
  Sender: FDA-Public Use
  Company Number: None

PATIENT
  Age: 10 Year
  Sex: Female
  Weight: 27.9 kg

DRUGS (3)
  1. ALBUTEROL SULFATE INHALATION SOLUTION 0.63MG/3ML. 25 VIALS [Suspect]
     Active Substance: ALBUTEROL SULFATE
     Indication: WHEEZING
     Dosage: ?          QUANTITY:25 VILES;?
     Route: 055
     Dates: start: 20171113, end: 20171113
  2. ALBUTEROL SULFATE INHALATION SOLUTION 0.63MG/3ML. 25 VIALS [Suspect]
     Active Substance: ALBUTEROL SULFATE
     Indication: COUGH
     Dosage: ?          QUANTITY:25 VILES;?
     Route: 055
     Dates: start: 20171113, end: 20171113
  3. ALBUTEROL SULFATE INHALATION SOLUTION 0.63MG/3ML. 25 VIALS [Suspect]
     Active Substance: ALBUTEROL SULFATE
     Indication: RESPIRATORY DISORDER
     Dosage: ?          QUANTITY:25 VILES;?
     Route: 055
     Dates: start: 20171113, end: 20171113

REACTIONS (5)
  - Erythema [None]
  - Urticaria [None]
  - No reaction on previous exposure to drug [None]
  - Lip swelling [None]
  - Rash [None]

NARRATIVE: CASE EVENT DATE: 20171113
